FAERS Safety Report 9700162 (Version 2)
Quarter: 2014Q1

REPORT INFORMATION
  Report Type: Spontaneous
  Country: US (occurrence: US)
  Receive Date: 20131121
  Receipt Date: 20140205
  Transmission Date: 20141002
  Serious: No
  Sender: FDA-Public Use
  Company Number: US-009507513-1311USA004263

PATIENT
  Age: 48 Year
  Sex: Female

DRUGS (1)
  1. AZASITE [Suspect]
     Indication: DRY EYE
     Dosage: 5 DROPS IN PER DRY EYES, BID
     Route: 047
     Dates: start: 20131107

REACTIONS (4)
  - Drug ineffective [Recovered/Resolved]
  - Drug dose omission [Unknown]
  - Off label use [Unknown]
  - Drug prescribing error [Unknown]
